FAERS Safety Report 9257882 (Version 1)
Quarter: 2013Q1

REPORT INFORMATION
  Report Type: Spontaneous
  Country: US (occurrence: None)
  Receive Date: 20121212
  Receipt Date: 20121212
  Transmission Date: 20140127
  Serious: No
  Sender: FDA-Public Use
  Company Number: 1208USA010351

PATIENT
  Sex: Male

DRUGS (6)
  1. REBETOL [Suspect]
     Indication: HEPATITIS C
     Dates: start: 20120530
  2. PEG-INTRON [Suspect]
     Indication: HEPATITIS C
     Dates: start: 20120530
  3. VICTRELIS [Suspect]
     Indication: HEPATITIS C
     Dates: start: 20120625
  4. LISINOPRIL (LISINOPRIL) [Concomitant]
  5. PROVATIN (PRAVASTATIN SODIUM) [Concomitant]
  6. DIAZEPAM (DIAZEPAM) [Concomitant]

REACTIONS (17)
  - Contusion [None]
  - Fatigue [None]
  - Irritability [None]
  - Headache [None]
  - Haemoglobin abnormal [None]
  - Hepatitis C [None]
  - Abdominal pain upper [None]
  - Fatigue [None]
  - Back pain [None]
  - Neck pain [None]
  - Neutrophil count decreased [None]
  - Platelet count decreased [None]
  - Neck injury [None]
  - Dysgeusia [None]
  - Anaemia [None]
  - Mood swings [None]
  - Skin disorder [None]
